FAERS Safety Report 22042490 (Version 2)
Quarter: 2023Q1

REPORT INFORMATION
  Report Type: Report from Study
  Country: US (occurrence: US)
  Receive Date: 20230228
  Receipt Date: 20230323
  Transmission Date: 20230418
  Serious: Yes (Death, Other)
  Sender: FDA-Public Use
  Company Number: US-ACADIA PHARMACEUTICALS INC.-ACA-2023-PIM-000714

PATIENT
  Sex: Female

DRUGS (11)
  1. NUPLAZID [Suspect]
     Active Substance: PIMAVANSERIN TARTRATE
     Indication: Parkinson^s disease
     Dosage: 34 MILLIGRAM, QD
     Route: 048
     Dates: end: 20230218
  2. ALPRAZOLAM [Concomitant]
     Active Substance: ALPRAZOLAM
  3. AMANTADINE [Concomitant]
     Active Substance: AMANTADINE
  4. CARBIDOPA\LEVODOPA [Concomitant]
     Active Substance: CARBIDOPA\LEVODOPA
  5. MIDODRINE [Concomitant]
     Active Substance: MIDODRINE
  6. MODAFINIL [Concomitant]
     Active Substance: MODAFINIL
  7. NORTHERA [Concomitant]
     Active Substance: DROXIDOPA
  8. QUETIAPINE [Concomitant]
     Active Substance: QUETIAPINE
  9. ESCITALOPRAM [Concomitant]
     Active Substance: ESCITALOPRAM OXALATE
  10. CARBIDOPA [Concomitant]
     Active Substance: CARBIDOPA
  11. GABAPENTIN [Concomitant]
     Active Substance: GABAPENTIN
     Dosage: 600, DAILY

REACTIONS (1)
  - Parkinson^s disease [Recovered/Resolved]
